FAERS Safety Report 15044837 (Version 1)
Quarter: 2018Q2

REPORT INFORMATION
  Report Type: Spontaneous
  Country: CA (occurrence: CA)
  Receive Date: 20180621
  Receipt Date: 20180621
  Transmission Date: 20180711
  Serious: Yes (Hospitalization, Other)
  Sender: FDA-Public Use
  Company Number: CA-JNJFOC-20180621456

PATIENT
  Age: 56 Year
  Sex: Female

DRUGS (1)
  1. SIMPONI [Suspect]
     Active Substance: GOLIMUMAB
     Indication: CROHN^S DISEASE
     Route: 058
     Dates: start: 201609

REACTIONS (6)
  - Diarrhoea [Unknown]
  - Product use in unapproved indication [Unknown]
  - Weight decreased [Unknown]
  - Malaise [Unknown]
  - Dialysis [Unknown]
  - Off label use [Unknown]

NARRATIVE: CASE EVENT DATE: 201609
